FAERS Safety Report 13396741 (Version 5)
Quarter: 2017Q4

REPORT INFORMATION
  Report Type: Report from Study
  Country: US (occurrence: US)
  Receive Date: 20170403
  Receipt Date: 20171108
  Transmission Date: 20180320
  Serious: Yes (Other)
  Sender: FDA-Public Use
  Company Number: US-JAZZ-2017-US-002409

PATIENT
  Age: 39 Year
  Sex: Female

DRUGS (39)
  1. RANITIDINE. [Concomitant]
     Active Substance: RANITIDINE
  2. ZALEPLON. [Concomitant]
     Active Substance: ZALEPLON
  3. TRAZODONE [Concomitant]
     Active Substance: TRAZODONE HYDROCHLORIDE
  4. SPIRONOLACTON [Concomitant]
     Active Substance: SPIRONOLACTONE
  5. XYREM [Suspect]
     Active Substance: SODIUM OXYBATE
     Dosage: 4.5 G, BID
     Route: 048
     Dates: start: 201701
  6. KLOR-CON [Concomitant]
     Active Substance: POTASSIUM CHLORIDE
  7. IBUPROFEN. [Concomitant]
     Active Substance: IBUPROFEN
  8. ALLERGY                            /00000402/ [Concomitant]
  9. LAMICTAL [Concomitant]
     Active Substance: LAMOTRIGINE
  10. RISPERDAL [Concomitant]
     Active Substance: RISPERIDONE
  11. BENADRYL ALLERGY [Concomitant]
     Active Substance: DIPHENHYDRAMINE HYDROCHLORIDE
  12. CEFADROXIL. [Concomitant]
     Active Substance: CEFADROXIL
  13. CLONAZEPAM. [Concomitant]
     Active Substance: CLONAZEPAM
  14. GABAPENTIN. [Concomitant]
     Active Substance: GABAPENTIN
  15. MELATONIN [Concomitant]
     Active Substance: MELATONIN
  16. REMERON [Concomitant]
     Active Substance: MIRTAZAPINE
  17. HALCION [Concomitant]
     Active Substance: TRIAZOLAM
  18. PROVIGIL [Suspect]
     Active Substance: MODAFINIL
     Indication: PRODUCT USED FOR UNKNOWN INDICATION
     Dosage: UNK, PRN
     Route: 065
  19. DYNACIN                            /00166002/ [Concomitant]
  20. PROPRANOLOL [Concomitant]
     Active Substance: PROPRANOLOL HYDROCHLORIDE
  21. XANAX [Concomitant]
     Active Substance: ALPRAZOLAM
  22. ZOFRAN [Concomitant]
     Active Substance: ONDANSETRON HYDROCHLORIDE
  23. AMITRIPTYLINE HCL [Concomitant]
     Active Substance: AMITRIPTYLINE
  24. HYDROCHLOROTHIAZIDE. [Concomitant]
     Active Substance: HYDROCHLOROTHIAZIDE
  25. CALCIUM + D DUETTO [Concomitant]
  26. DOXEPIN [Concomitant]
     Active Substance: DOXEPIN
  27. LEXAPRO [Concomitant]
     Active Substance: ESCITALOPRAM OXALATE
  28. MAGNESIUM OXIDE. [Concomitant]
     Active Substance: MAGNESIUM OXIDE
  29. ACANYA [Concomitant]
     Active Substance: BENZOYL PEROXIDE\CLINDAMYCIN PHOSPHATE
  30. BACLOFEN. [Concomitant]
     Active Substance: BACLOFEN
  31. RETINOL ACETAT [Concomitant]
  32. ROBAXIN [Concomitant]
     Active Substance: METHOCARBAMOL
  33. DIFFERIN [Concomitant]
     Active Substance: ADAPALENE
  34. DIPHENOXYLATE/ATROPINE [Concomitant]
     Active Substance: ATROPINE\DIPHENOXYLATE
  35. XYREM [Suspect]
     Active Substance: SODIUM OXYBATE
     Indication: NARCOLEPSY
     Dosage: 2.25 G, BID
     Route: 048
     Dates: start: 200709, end: 200711
  36. XYREM [Suspect]
     Active Substance: SODIUM OXYBATE
     Indication: CATAPLEXY
     Dosage: DOSE ADJSUTMENT
     Route: 048
     Dates: start: 200711, end: 201701
  37. MELOXICAM. [Concomitant]
     Active Substance: MELOXICAM
  38. EFFEXOR [Concomitant]
     Active Substance: VENLAFAXINE HYDROCHLORIDE
  39. CYCLOBENZAPRINE. [Concomitant]
     Active Substance: CYCLOBENZAPRINE

REACTIONS (10)
  - Somnambulism [Unknown]
  - Nausea [Not Recovered/Not Resolved]
  - Incorrect dose administered [Unknown]
  - Malaise [Unknown]
  - Vomiting [Unknown]
  - Parasomnia [Unknown]
  - Blood pressure increased [Recovering/Resolving]
  - Colitis [Unknown]
  - Gallbladder disorder [Recovered/Resolved]
  - Diarrhoea [Unknown]

NARRATIVE: CASE EVENT DATE: 201602
